FAERS Safety Report 7384517-6 (Version None)
Quarter: 2011Q1

REPORT INFORMATION
  Report Type: 
  Country: None (occurrence: None)
  Receive Date: 20110330
  Receipt Date: 20110321
  Transmission Date: 20110831
  Serious: Yes (Hospitalization)
  Sender: FDA-Public Use
  Company Number: FR-ASTRAZENECA-2011SE17216

PATIENT
  Age: 84 Year
  Sex: Male
  Weight: 69.9 kg

DRUGS (13)
  1. NEXIUM [Suspect]
     Indication: PROPHYLAXIS AGAINST GASTROINTESTINAL ULCER
     Route: 048
     Dates: end: 20110210
  2. CETORNAN [Suspect]
     Indication: ENTERAL NUTRITION
     Route: 048
     Dates: end: 20110210
  3. ECONAZOLE NITRATE [Concomitant]
  4. KARDEGIC [Concomitant]
  5. ENERGIE POWER [Concomitant]
  6. TRAMADOL [Suspect]
     Route: 048
     Dates: end: 20110210
  7. ACUPAN [Concomitant]
  8. TAHOR [Suspect]
     Indication: HYPERCHOLESTEROLAEMIA
     Route: 048
     Dates: end: 20110210
  9. TAMSULOSINE [Suspect]
     Indication: URINARY RETENTION
     Route: 048
     Dates: end: 20110210
  10. ATENOLOL [Concomitant]
  11. BACTRIM [Concomitant]
  12. FLAGYL [Concomitant]
  13. PARACETAMOL [Suspect]
     Route: 048
     Dates: end: 20110210

REACTIONS (2)
  - CYTOLYTIC HEPATITIS [None]
  - CHOLESTASIS [None]
